FAERS Safety Report 9097380 (Version 1)
Quarter: 2013Q1

REPORT INFORMATION
  Report Type: Spontaneous
  Country: CA (occurrence: CA)
  Receive Date: 20130212
  Receipt Date: 20130212
  Transmission Date: 20140127
  Serious: Yes (Other)
  Sender: FDA-Public Use
  Company Number: CA-ELI_LILLY_AND_COMPANY-CA201302000947

PATIENT
  Age: 75 Year
  Sex: Female

DRUGS (11)
  1. FORTEO [Suspect]
     Indication: OSTEOPOROSIS
     Dosage: 20 UG, QD
     Dates: start: 20120615
  2. PANTOLOC [Concomitant]
  3. ASA [Concomitant]
  4. LIPITOR [Concomitant]
  5. BISOPROLOL [Concomitant]
  6. RAMIPRIL [Concomitant]
  7. TRINIPATCH [Concomitant]
  8. CALTRATE [Concomitant]
  9. SOFLAX [Concomitant]
  10. NITRO-SPRAY [Concomitant]
  11. CLONAZEPAM [Concomitant]

REACTIONS (1)
  - Pancreatitis acute [Not Recovered/Not Resolved]
